FAERS Safety Report 9185661 (Version 1)
Quarter: 2013Q1

REPORT INFORMATION
  Report Type: Spontaneous
  Country: RS (occurrence: None)
  Receive Date: 20130321
  Receipt Date: 20130321
  Transmission Date: 20140127
  Serious: Yes (Other)
  Sender: FDA-Public Use
  Company Number: 2013-04871

PATIENT
  Age: 64 Year
  Sex: Female

DRUGS (1)
  1. CARBOPLATIN (CARBOPLATIN) [Suspect]
     Indication: OVARIAN CANCER METASTATIC
     Dosage: A CYCLE EVERY THIRD WEEK, INTRAVENOUS
     Dates: start: 20130219, end: 20130219

REACTIONS (3)
  - Rash macular [None]
  - Pruritus [None]
  - Chills [None]
